FAERS Safety Report 25957785 (Version 1)
Quarter: 2025Q4

REPORT INFORMATION
  Report Type: Spontaneous
  Country: GB (occurrence: GB)
  Receive Date: 20251024
  Receipt Date: 20251024
  Transmission Date: 20260118
  Serious: Yes (Hospitalization, Other)
  Sender: SANDOZ
  Company Number: None

PATIENT
  Age: 84 Year
  Sex: Male

DRUGS (16)
  1. METFORMIN [Suspect]
     Active Substance: METFORMIN HYDROCHLORIDE
     Indication: Product used for unknown indication
     Route: 065
  2. BISOPROLOL [Concomitant]
     Active Substance: BISOPROLOL
     Indication: Product used for unknown indication
     Dosage: BISOPROLOL 5 MG TABLETS ONE TO BE TAKEN EACH DAY
     Route: 065
  3. 3M CAVILON ANTIFUNGAL [Concomitant]
     Active Substance: MICONAZOLE NITRATE
     Indication: Product used for unknown indication
     Dosage: CAVILON DURABLE BARRIER CREAM APPLY TO THE AFFECTED AREAS WHEN REQUIRED AUTHORISED (NOT YET ISSUED?)
     Route: 065
  4. CHOLECALCIFEROL [Concomitant]
     Active Substance: CHOLECALCIFEROL
     Indication: Product used for unknown indication
     Dosage: COLECALCIFEROL 800 UNIT CAPSULES ONE TO BE TAKEN EACH MORNING
     Route: 065
  5. DOCUSATE [Concomitant]
     Active Substance: DOCUSATE
     Indication: Product used for unknown indication
     Dosage: DOCUSATE 100 MG CAPSULES ONE OR TWO TO BE TAKEN IN THE MORNING AND AT NIGHT WHEN REQUIRED FOR CONSTI
     Route: 065
  6. DOXAZOSIN [Concomitant]
     Active Substance: DOXAZOSIN MESYLATE
     Indication: Product used for unknown indication
     Dosage: DOXAZOSIN 2 MG TABLETS ONE TO BE TAKEN EACH DAY
     Route: 065
  7. ENOXAPARIN [Concomitant]
     Active Substance: ENOXAPARIN
     Indication: Product used for unknown indication
     Dosage: ENOXAPARIN SODIUM 80 MG / 0.8 ML SOLUTION FOR INJECTION PRE-FILLED SYRINGES 80 MG TWICE A DAY AT 9 A
     Route: 065
  8. FAMOTIDINE [Concomitant]
     Active Substance: FAMOTIDINE
     Indication: Product used for unknown indication
     Dosage: FAMOTIDINE 20 MG TABLETS ONE TO BE TAKEN IN THE MORNING
     Route: 065
  9. POLYETHYLENE GLYCOLS [Concomitant]
     Active Substance: POLYETHYLENE GLYCOLS
     Indication: Constipation
     Dosage: MACROGOL COMPOUND ORAL POWDER SACHETS NPF SUGAR FREE ONE SACHET TO BE TAKEN TWICE A DAY WHEN REQUIRE
     Route: 065
  10. MIRTAZAPINE [Concomitant]
     Active Substance: MIRTAZAPINE
     Indication: Product used for unknown indication
     Dosage: MIRTAZAPINE 15 MG TABLETS ONE TO BE TAKEN AT NIGHT
     Route: 065
  11. ISOSORBIDE MONONITRATE [Concomitant]
     Active Substance: ISOSORBIDE MONONITRATE
     Indication: Product used for unknown indication
     Dosage: MONOMIL XL 60 MG TABLETS ONE TO BE TAKEN EACH MORNING
     Route: 065
  12. NICORANDIL [Concomitant]
     Active Substance: NICORANDIL
     Indication: Skin wound
     Dosage: NICORANDIL 20 MG TABLETS ONE TO BE TAKEN TWICE A DAY - REDUCE TO 10MG BD WITH AIM TO STOP (GIVEN CHR
     Route: 065
  13. ACETAMINOPHEN [Concomitant]
     Active Substance: ACETAMINOPHEN
     Indication: Pain
     Dosage: 500 MG
     Route: 065
  14. RANOLAZINE [Concomitant]
     Active Substance: RANOLAZINE
     Indication: Product used for unknown indication
     Dosage: RANOLAZINE 375 MG MODIFIED-RELEASE TABLETS ONE TO BE TAKEN TWICE A DAY
     Route: 065
  15. SENNA [Concomitant]
     Active Substance: SENNOSIDES
     Indication: Constipation
     Dosage: SENNA 7.5 MG TABLETS TWO TO BE TAKEN AT NIGHT WHEN RERQUIRED FOR CONSTIPATION
     Route: 065
  16. SIMVASTATIN [Concomitant]
     Active Substance: SIMVASTATIN
     Indication: Product used for unknown indication
     Dosage: SIMVASTATIN 20 MG TABLETS ONE TO BE TAKEN AT NIGHT
     Route: 065

REACTIONS (2)
  - Kidney infection [Unknown]
  - Lactic acidosis [Unknown]
